FAERS Safety Report 15928317 (Version 1)
Quarter: 2019Q1

REPORT INFORMATION
  Report Type: Report from Study
  Country: PA (occurrence: PA)
  Receive Date: 20190206
  Receipt Date: 20190206
  Transmission Date: 20190417
  Serious: Yes (Other)
  Sender: FDA-Public Use
  Company Number: PA-SA-2019SA030525

PATIENT
  Age: 72 Year
  Sex: Female

DRUGS (3)
  1. APROVEL [Suspect]
     Active Substance: IRBESARTAN
     Dosage: UNK UNK, QD
     Dates: start: 2014
  2. INSULIN GLARGINE [Suspect]
     Active Substance: INSULIN GLARGINE
     Indication: DIABETES MELLITUS
     Dosage: 11 IU, QD
     Route: 058
     Dates: start: 2015
  3. PLAVIX [Suspect]
     Active Substance: CLOPIDOGREL BISULFATE
     Dosage: UNK UNK, QD
     Route: 048
     Dates: start: 2014

REACTIONS (2)
  - Hip arthroplasty [Unknown]
  - Cerebrovascular accident [Recovered/Resolved]
